FAERS Safety Report 13058202 (Version 1)
Quarter: 2016Q4

REPORT INFORMATION
  Report Type: Spontaneous
  Country: US (occurrence: US)
  Receive Date: 20161223
  Receipt Date: 20161223
  Transmission Date: 20170207
  Serious: No
  Sender: FDA-Public Use
  Company Number: US-BIOGEN-2016BI00332652

PATIENT
  Sex: Female

DRUGS (1)
  1. TECFIDERA [Suspect]
     Active Substance: DIMETHYL FUMARATE
     Indication: MULTIPLE SCLEROSIS
     Route: 065
     Dates: start: 20160418

REACTIONS (8)
  - Muscle spasms [Unknown]
  - Gait disturbance [Unknown]
  - Vertigo [Unknown]
  - Somnolence [Unknown]
  - Memory impairment [Unknown]
  - Dizziness postural [Unknown]
  - Reading disorder [Unknown]
  - Balance disorder [Unknown]
